FAERS Safety Report 20747299 (Version 2)
Quarter: 2022Q2

REPORT INFORMATION
  Report Type: Report from Study
  Country: US (occurrence: US)
  Receive Date: 20220425
  Receipt Date: 20220525
  Transmission Date: 20220721
  Serious: Yes (Hospitalization, Other)
  Sender: FDA-Public Use
  Company Number: US-SEATTLE GENETICS-2022SGN03730

PATIENT
  Age: 61 Year
  Sex: Female

DRUGS (1)
  1. TUCATINIB [Suspect]
     Active Substance: TUCATINIB
     Indication: Breast cancer female
     Route: 065

REACTIONS (6)
  - Kidney infection [Unknown]
  - Vomiting [Unknown]
  - Bladder pain [Unknown]
  - Fall [Unknown]
  - Nausea [Unknown]
  - Vomiting [Recovered/Resolved]

NARRATIVE: CASE EVENT DATE: 20220401
